FAERS Safety Report 4551888-5 (Version None)
Quarter: 2004Q4

REPORT INFORMATION
  Report Type: 
  Country: None (occurrence: None)
  Receive Date: 20041217
  Receipt Date: 20040811
  Transmission Date: 20050328
  Serious: No
  Sender: FDA-Public Use
  Company Number: 2004-BP-06783BP(0)

PATIENT
  Age: 58 Year
  Sex: Female

DRUGS (4)
  1. SPIRIVA [Suspect]
     Indication: CHRONIC OBSTRUCTIVE AIRWAYS DISEASE
     Dosage: 18 MCG (18 MCG), IH
     Route: 055
     Dates: start: 20040501
  2. ADVAIR (SERETIDE MITE) [Concomitant]
  3. SUDAFED 12 HOUR [Concomitant]
  4. SINGULAIR [Concomitant]

REACTIONS (3)
  - DRY SKIN [None]
  - NON-CARDIAC CHEST PAIN [None]
  - PHARYNGEAL ULCERATION [None]
